FAERS Safety Report 6125577-X (Version None)
Quarter: 2009Q1

REPORT INFORMATION
  Report Type: 
  Country: None (occurrence: None)
  Receive Date: 20090320
  Receipt Date: 20090312
  Transmission Date: 20090719
  Serious: Yes (Other)
  Sender: FDA-Public Use
  Company Number: US-BAYER-200911586NA

PATIENT
  Sex: Female
  Weight: 53 kg

DRUGS (3)
  1. MIRENA [Suspect]
     Indication: CONTRACEPTION
     Route: 015
     Dates: start: 20061025, end: 20080718
  2. ZOLOFT [Concomitant]
  3. MULTI-VITAMINS [Concomitant]

REACTIONS (12)
  - ABDOMINAL DISTENSION [None]
  - ABDOMINAL PAIN LOWER [None]
  - ANOREXIA [None]
  - COMPLICATION OF DEVICE REMOVAL [None]
  - DYSPAREUNIA [None]
  - EMOTIONAL DISORDER [None]
  - FATIGUE [None]
  - IUD MIGRATION [None]
  - MALAISE [None]
  - MOOD SWINGS [None]
  - PREMENSTRUAL SYNDROME [None]
  - PROCEDURAL PAIN [None]
